FAERS Safety Report 8816535 (Version 1)
Quarter: 2012Q4

REPORT INFORMATION
  Report Type: Spontaneous
  Country: US (occurrence: None)
  Receive Date: 20120927
  Receipt Date: 20120927
  Transmission Date: 20130627
  Serious: Yes (Life-Threatening, Hospitalization, Other)
  Sender: FDA-Public Use
  Company Number: APER20120010

PATIENT
  Age: 54 Year
  Sex: Male

DRUGS (2)
  1. ALPRAZOLAM ER [Suspect]
     Indication: PRODUCT USED FOR UNKNOWN INDICATION
  2. OXYCODONE HCL [Suspect]
     Indication: PRODUCT USED FOR UNKNOWN INDICATION

REACTIONS (9)
  - Leukoencephalopathy [None]
  - Unresponsive to stimuli [None]
  - Respiratory arrest [None]
  - Acidosis [None]
  - Drug screen positive [None]
  - Pneumonia aspiration [None]
  - Memory impairment [None]
  - Overdose [None]
  - Hypoxia [None]
